FAERS Safety Report 10369573 (Version 2)
Quarter: 2015Q4

REPORT INFORMATION
  Report Type: Spontaneous
  Country: US (occurrence: US)
  Receive Date: 20140807
  Receipt Date: 20151013
  Transmission Date: 20160304
  Serious: No
  Sender: FDA-Public Use
  Company Number: US-AMGEN INC.-USASP2014020314

PATIENT
  Age: 51 Year
  Sex: Female

DRUGS (18)
  1. RANITIDINE HCL [Concomitant]
     Active Substance: RANITIDINE HYDROCHLORIDE
     Dosage: 50 MG, UNK
     Route: 042
     Dates: start: 20110728
  2. DARBEPOETIN ALFA [Concomitant]
     Active Substance: DARBEPOETIN ALFA
     Dosage: 300 MUG, UNK
     Route: 058
  3. FILGRASTIM [Suspect]
     Active Substance: FILGRASTIM
     Indication: PRODUCT USED FOR UNKNOWN INDICATION
     Dosage: 300 MUG, UNK
     Route: 058
  4. HERCEPTIN [Suspect]
     Active Substance: TRASTUZUMAB
     Dosage: 468 MG, UNK
     Route: 042
     Dates: start: 20110811
  5. HERCEPTIN [Suspect]
     Active Substance: TRASTUZUMAB
     Dosage: 152 MG, UNK
     Route: 042
     Dates: start: 20110526
  6. DEXAMETHASONE. [Concomitant]
     Active Substance: DEXAMETHASONE
     Dosage: 10 MG, UNK
     Route: 042
     Dates: start: 20110728
  7. TAXOL [Concomitant]
     Active Substance: PACLITAXEL
     Dosage: 146 MG, UNK
     Route: 042
  8. HERCEPTIN [Suspect]
     Active Substance: TRASTUZUMAB
     Dosage: 156 MG, UNK
     Route: 042
     Dates: start: 20110630
  9. HEPARIN [Concomitant]
     Active Substance: HEPARIN SODIUM
     Dosage: UNK
  10. TAXOL [Concomitant]
     Active Substance: PACLITAXEL
     Dosage: 143 MG, UNK
     Route: 042
     Dates: start: 20110728
  11. ACETAMINOPHEN. [Concomitant]
     Active Substance: ACETAMINOPHEN
     Dosage: 650 MG, UNK
     Route: 042
  12. HERCEPTIN [Suspect]
     Active Substance: TRASTUZUMAB
     Indication: BREAST CANCER
     Dosage: 463 MG, UNK
     Route: 042
     Dates: start: 20111103
  13. HERCEPTIN [Suspect]
     Active Substance: TRASTUZUMAB
     Dosage: 476 MG, UNK
     Route: 042
     Dates: start: 20111013
  14. HERCEPTIN [Suspect]
     Active Substance: TRASTUZUMAB
     Dosage: 156 MG, UNK
     Route: 042
     Dates: start: 20110616
  15. HERCEPTIN [Suspect]
     Active Substance: TRASTUZUMAB
     Dosage: 152 MG, UNK
     Route: 042
     Dates: start: 20110519
  16. HERCEPTIN [Suspect]
     Active Substance: TRASTUZUMAB
     Dosage: 159 MG, QWK
     Route: 042
     Dates: start: 20110707
  17. HERCEPTIN [Suspect]
     Active Substance: TRASTUZUMAB
     Dosage: 465 MG, UNK
     Route: 042
     Dates: start: 20110922
  18. PALONOSETRON [Concomitant]
     Active Substance: PALONOSETRON
     Dosage: 0.25 MG, UNK
     Route: 042

REACTIONS (2)
  - Pain [Unknown]
  - Nausea [Unknown]
